FAERS Safety Report 11362139 (Version 1)
Quarter: 2015Q3

REPORT INFORMATION
  Report Type: Spontaneous
  Country: SE (occurrence: SE)
  Receive Date: 20150810
  Receipt Date: 20150810
  Transmission Date: 20151125
  Serious: Yes (Hospitalization, Other)
  Sender: FDA-Public Use
  Company Number: SE-PFIZER INC-2015246440

PATIENT
  Age: 18 Year
  Sex: Female

DRUGS (3)
  1. EPANUTIN [Suspect]
     Active Substance: PHENYTOIN SODIUM
     Indication: MENSTRUAL DISORDER
     Dosage: 0.05 G X 2
     Dates: start: 1950
  2. MESANTOIN [Suspect]
     Active Substance: MEPHENYTOIN
     Dosage: 0.1 G X 2
     Dates: start: 195203
  3. THYROID [Concomitant]
     Active Substance: LEVOTHYROXINE\LIOTHYRONINE
     Indication: MENSTRUAL DISORDER
     Dosage: A SMALL DOSE
     Dates: start: 1950

REACTIONS (4)
  - Rash [Recovered/Resolved]
  - Pyrexia [Recovered/Resolved]
  - Lymphadenopathy [Recovered/Resolved]
  - Systemic lupus erythematosus [Recovered/Resolved]

NARRATIVE: CASE EVENT DATE: 195006
